FAERS Safety Report 17758904 (Version 1)
Quarter: 2020Q2

REPORT INFORMATION
  Report Type: Spontaneous
  Country: AU (occurrence: AU)
  Receive Date: 20200508
  Receipt Date: 20200508
  Transmission Date: 20200714
  Serious: Yes (Other)
  Sender: FDA-Public Use
  Company Number: AU-AMGEN-AUSSP2020073130

PATIENT
  Sex: Male

DRUGS (10)
  1. ASPIRIN [ACETYLSALICYLIC ACID] [Concomitant]
     Active Substance: ASPIRIN
  2. PERINDOPRIL [Concomitant]
     Active Substance: PERINDOPRIL
  3. FLUOXETINE [Concomitant]
     Active Substance: FLUOXETINE HYDROCHLORIDE
  4. ROSUVASTATIN. [Concomitant]
     Active Substance: ROSUVASTATIN
  5. CALCITRIOL. [Concomitant]
     Active Substance: CALCITRIOL
     Indication: PATHOLOGICAL FRACTURE PROPHYLAXIS
  6. METOPROLOL. [Concomitant]
     Active Substance: METOPROLOL
  7. CINACALCET HCL [Suspect]
     Active Substance: CINACALCET HYDROCHLORIDE
     Indication: PRODUCT USED FOR UNKNOWN INDICATION
     Dosage: UNK
     Route: 065
  8. THYROXINE [Concomitant]
     Active Substance: LEVOTHYROXINE
  9. LEVEMIR [Concomitant]
     Active Substance: INSULIN DETEMIR
  10. EPOETIN LAMBDA [Concomitant]

REACTIONS (4)
  - Acute abdomen [Unknown]
  - Colitis ischaemic [Unknown]
  - Calciphylaxis [Unknown]
  - Vitamin K decreased [Unknown]
